FAERS Safety Report 8188553-1 (Version None)
Quarter: 2012Q1

REPORT INFORMATION
  Report Type: 
  Country: None (occurrence: None)
  Receive Date: 20120306
  Receipt Date: 20120302
  Transmission Date: 20120608
  Serious: Yes (Other)
  Sender: FDA-Public Use
  Company Number: PHHY2012IT018729

PATIENT
  Sex: Female

DRUGS (1)
  1. ZOMETA [Suspect]
     Indication: METASTASES TO BONE
     Dosage: CYCLIC DOSAGE OF 4 MG
     Route: 042
     Dates: start: 20090610, end: 20110615

REACTIONS (1)
  - OSTEONECROSIS OF JAW [None]
